FAERS Safety Report 7970146-X (Version None)
Quarter: 2011Q4

REPORT INFORMATION
  Report Type: 
  Country: None (occurrence: None)
  Receive Date: 20111122
  Receipt Date: 20110823
  Transmission Date: 20120403
  Serious: Yes (Other)
  Sender: FDA-Public Use
  Company Number: PHHY2011US54193

PATIENT
  Age: 44 Year
  Sex: Male

DRUGS (1)
  1. GILENYA [Suspect]
     Indication: MULTIPLE SCLEROSIS
     Dosage: 0.5MG, DAILY, ORAL
     Route: 048
     Dates: start: 20110616, end: 20110731

REACTIONS (17)
  - RED BLOOD CELL COUNT DECREASED [None]
  - ASTHENIA [None]
  - WHITE BLOOD CELL COUNT DECREASED [None]
  - CYSTITIS [None]
  - DYSURIA [None]
  - FOOD POISONING [None]
  - VISION BLURRED [None]
  - HEADACHE [None]
  - VOMITING [None]
  - MUSCULOSKELETAL STIFFNESS [None]
  - MUSCULOSKELETAL PAIN [None]
  - FATIGUE [None]
  - POLLAKIURIA [None]
  - CHEST DISCOMFORT [None]
  - DYSPNOEA [None]
  - RESPIRATORY TRACT INFECTION [None]
  - PAIN IN EXTREMITY [None]
